FAERS Safety Report 8575509-X (Version None)
Quarter: 2012Q3

REPORT INFORMATION
  Report Type: 
  Country: None (occurrence: None)
  Receive Date: 20120807
  Receipt Date: 20120802
  Transmission Date: 20120928
  Serious: Yes (Other)
  Sender: FDA-Public Use
  Company Number: PHHY2012CA067059

PATIENT
  Sex: Female

DRUGS (1)
  1. SANDOSTATIN LAR [Suspect]
     Indication: ENDOCRINE NEOPLASM MALIGNANT
     Dosage: 20 MG ONCE A MONTH
     Route: 030
     Dates: start: 20120330

REACTIONS (1)
  - BLOOD PRESSURE DIASTOLIC DECREASED [None]
